FAERS Safety Report 13451767 (Version 1)
Quarter: 2017Q2

REPORT INFORMATION
  Report Type: Spontaneous
  Country: US (occurrence: US)
  Receive Date: 20170418
  Receipt Date: 20170418
  Transmission Date: 20170830
  Serious: Yes (Life-Threatening, Hospitalization)
  Sender: FDA-Public Use
  Company Number: None

PATIENT
  Age: 58 Year
  Sex: Female
  Weight: 51.3 kg

DRUGS (2)
  1. LISINOPRIL. [Concomitant]
     Active Substance: LISINOPRIL
  2. GILENYA [Suspect]
     Active Substance: FINGOLIMOD HYDROCHLORIDE
     Indication: MULTIPLE SCLEROSIS
     Dosage: (30 PILLS) 1 PILL DAILY 1 DAILEY BY MOUTH
     Route: 048
     Dates: start: 201408, end: 20170228

REACTIONS (7)
  - Shock [None]
  - Cardiac tamponade [None]
  - Vomiting [None]
  - Blood urine present [None]
  - Urinary tract infection [None]
  - Nephrolithiasis [None]
  - Pericardial effusion [None]

NARRATIVE: CASE EVENT DATE: 20170207
